FAERS Safety Report 9709424 (Version 1)
Quarter: 2013Q4

REPORT INFORMATION
  Report Type: Report from Study
  Country: US (occurrence: US)
  Receive Date: 20131126
  Receipt Date: 20131126
  Transmission Date: 20140711
  Serious: Yes (Death)
  Sender: FDA-Public Use
  Company Number: US-ROCHE-1307374

PATIENT
  Sex: Female
  Weight: 64.3 kg

DRUGS (4)
  1. AVASTIN [Suspect]
     Indication: NON-SMALL CELL LUNG CANCER
     Dosage: DOSE ADMINISTERED ON: 17/NOV/2011, 8/DEC/2011, 29/DEC/2011, 19/JAN/2012
     Route: 042
  2. ALIMTA [Concomitant]
     Dosage: DOSE ADMINISTERED ON: 17/NOV/2011, 8/DEC/2011, 29/DEC/2011, 19/JAN/2012
     Route: 042
  3. CARBOPLATIN [Concomitant]
     Dosage: DOSE ADMINISTERED ON: 17/NOV/2011, 8/DEC/2011, 29/DEC/2011, 19/JAN/2012
     Route: 042
  4. VITAMIN B12 [Concomitant]
     Dosage: DOSE ADMINISTERED ON: 17/NOV/2011, 8/DEC/2011, 29/DEC/2011, 19/JAN/2012
     Route: 030

REACTIONS (1)
  - Death [Fatal]
